FAERS Safety Report 11581300 (Version 1)
Quarter: 2015Q4

REPORT INFORMATION
  Report Type: Spontaneous
  Country: US (occurrence: US)
  Receive Date: 20151001
  Receipt Date: 20151001
  Transmission Date: 20160304
  Serious: No
  Sender: FDA-Public Use
  Company Number: US-ROCHE-692939

PATIENT
  Age: 58 Year
  Sex: Female

DRUGS (2)
  1. PEGASYS [Suspect]
     Active Substance: PEGINTERFERON ALFA-2A
     Indication: HEPATITIS C
     Dosage: FORM: PRE-FILLED SYRINGE
     Route: 058
  2. RIBAVIRIN. [Suspect]
     Active Substance: RIBAVIRIN
     Indication: HEPATITIS C
     Dosage: IN DIVIDED DOSES.
     Route: 048

REACTIONS (7)
  - Nausea [Unknown]
  - Pruritus [Unknown]
  - Asthenia [Unknown]
  - Dry skin [Not Recovered/Not Resolved]
  - Syncope [Unknown]
  - Dizziness [Unknown]
  - Vomiting [Unknown]

NARRATIVE: CASE EVENT DATE: 20100310
